FAERS Safety Report 7558900-X (Version None)
Quarter: 2011Q2

REPORT INFORMATION
  Report Type: 
  Country: None (occurrence: None)
  Receive Date: 20110613
  Receipt Date: 20110531
  Transmission Date: 20111010
  Serious: Yes (Hospitalization, Other)
  Sender: FDA-Public Use
  Company Number: 117839

PATIENT
  Age: 62 Year
  Sex: Female

DRUGS (1)
  1. METHOTREXATE [Suspect]
     Indication: PSORIASIS
     Dosage: 7.5 MG/DAILY (THE PRESCRIPTION WAS FOR 7.5 MG

REACTIONS (10)
  - PANCYTOPENIA [None]
  - LIP EROSION [None]
  - MALAISE [None]
  - HYPOPHAGIA [None]
  - OVERDOSE [None]
  - TOXICITY TO VARIOUS AGENTS [None]
  - RENAL FAILURE ACUTE [None]
  - SKIN EROSION [None]
  - MOUTH ULCERATION [None]
  - DEHYDRATION [None]
